FAERS Safety Report 6413306-1 (Version None)
Quarter: 2009Q4

REPORT INFORMATION
  Report Type: 
  Country: None (occurrence: None)
  Receive Date: 20091026
  Receipt Date: 20091015
  Transmission Date: 20100525
  Serious: Yes (Other)
  Sender: FDA-Public Use
  Company Number: FR-JNJFOC-20090300505

PATIENT
  Age: 37 Year
  Sex: Male

DRUGS (1)
  1. REMICADE [Suspect]
     Indication: ANKYLOSING SPONDYLITIS
     Dosage: EVERY 15 DAYS, EVERY 2 MONTHS, THEN EVERY 4 MONTHS FROM SEP-2008 TO JAN-2009.
     Route: 042

REACTIONS (1)
  - LYMPHOMA [None]
